FAERS Safety Report 11117499 (Version 5)
Quarter: 2017Q2

REPORT INFORMATION
  Report Type: Spontaneous
  Country: US (occurrence: US)
  Receive Date: 20150516
  Receipt Date: 20170405
  Transmission Date: 20170829
  Serious: Yes (Life-Threatening, Hospitalization, Other)
  Sender: FDA-Public Use
  Company Number: PHHY2015US052030

PATIENT
  Age: 19 Year
  Sex: Male

DRUGS (7)
  1. LORAZEPAM. [Concomitant]
     Active Substance: LORAZEPAM
     Indication: PRODUCT USED FOR UNKNOWN INDICATION
     Route: 048
  2. FOSPHENYTOIN [Concomitant]
     Active Substance: FOSPHENYTOIN\FOSPHENYTOIN SODIUM
     Indication: PRODUCT USED FOR UNKNOWN INDICATION
     Route: 048
  3. LIORESAL [Suspect]
     Active Substance: BACLOFEN
     Indication: QUADRIPLEGIA
  4. OXCARBAZEPINE. [Concomitant]
     Active Substance: OXCARBAZEPINE
     Indication: PRODUCT USED FOR UNKNOWN INDICATION
     Route: 048
  5. DIAZEPAM. [Concomitant]
     Active Substance: DIAZEPAM
     Indication: PRODUCT USED FOR UNKNOWN INDICATION
     Route: 048
  6. LIORESAL [Suspect]
     Active Substance: BACLOFEN
     Indication: MUSCLE SPASTICITY
     Dosage: 1599.5 UG, QD
     Route: 037
  7. LIORESAL [Suspect]
     Active Substance: BACLOFEN
     Indication: CEREBRAL PALSY
     Dosage: DOSE ADJUSTED AND BOLUS WAS GIVEN
     Route: 037

REACTIONS (18)
  - Overdose [Recovered/Resolved]
  - Underdose [Recovered/Resolved]
  - Hypotonia [Recovered/Resolved]
  - Irritability [Recovered/Resolved]
  - Dyspnoea [Recovered/Resolved]
  - Respiratory arrest [Recovered/Resolved]
  - Restlessness [Recovered/Resolved]
  - Hyperhidrosis [Recovered/Resolved]
  - Device failure [Unknown]
  - Coma [Recovered/Resolved]
  - Insomnia [Recovered/Resolved]
  - Hypopnoea [Recovered/Resolved]
  - Autonomic nervous system imbalance [Recovered/Resolved]
  - Seizure [Recovered/Resolved]
  - Unresponsive to stimuli [Recovered/Resolved]
  - Infusion site mass [Recovered/Resolved]
  - Withdrawal syndrome [Recovered/Resolved]
  - Bradycardia [Recovered/Resolved]

NARRATIVE: CASE EVENT DATE: 2011
